FAERS Safety Report 4552225-2 (Version None)
Quarter: 2004Q4

REPORT INFORMATION
  Report Type: 
  Country: None (occurrence: None)
  Receive Date: 20041217
  Receipt Date: 20040811
  Transmission Date: 20050328
  Serious: No
  Sender: FDA-Public Use
  Company Number: 2004-BP-06737BP

PATIENT
  Sex: Female

DRUGS (3)
  1. SPIRIVA [Suspect]
     Indication: CHRONIC OBSTRUCTIVE AIRWAYS DISEASE
     Dosage: 18 MCG (18 MCG),IH
     Route: 055
     Dates: start: 20031201
  2. ALBUTEROL [Suspect]
     Dosage: BOTH MDI AND SOLUTION, IH
  3. ADVAIR DISKUS 100/50 [Concomitant]

REACTIONS (3)
  - DYSPHONIA [None]
  - DYSPNOEA [None]
  - PALPITATIONS [None]
